FAERS Safety Report 8089164 (Version 5)
Quarter: 2013Q4

REPORT INFORMATION
  Report Type: Spontaneous
  Country: US (occurrence: US)
  Receive Date: 20110812
  Receipt Date: 20131105
  Transmission Date: 20140711
  Serious: Yes (Hospitalization)
  Sender: FDA-Public Use
  Company Number: US-ASTRAZENECA-2010SE10611

PATIENT
  Age: 58 Year
  Sex: Female
  Weight: 99.8 kg

DRUGS (20)
  1. PULMICORT RESPULES [Suspect]
     Indication: CHRONIC OBSTRUCTIVE PULMONARY DISEASE
     Dosage: 0.5MG 2ML BID
     Route: 055
  2. CRESTOR [Suspect]
     Indication: BLOOD CHOLESTEROL ABNORMAL
     Route: 048
  3. ACCOLATE [Suspect]
     Indication: CHRONIC OBSTRUCTIVE PULMONARY DISEASE
     Route: 048
  4. PREDNISONE [Concomitant]
     Indication: CHRONIC OBSTRUCTIVE PULMONARY DISEASE
     Route: 048
     Dates: start: 1999
  5. DUONEB [Concomitant]
     Indication: CHRONIC OBSTRUCTIVE PULMONARY DISEASE
     Route: 055
  6. NYSTATIN [Concomitant]
     Indication: CANDIDA INFECTION
     Dosage: SWISH AND SWALLOW, 1 TEASPOON, THREE TIMES A DAY
     Route: 048
  7. LEVAMIR [Concomitant]
     Indication: DIABETES MELLITUS
     Dosage: 50 UNITS TWO TIMES A DAY
     Route: 058
  8. NOVOLOG [Concomitant]
     Indication: DIABETES MELLITUS
     Dosage: 10 TO 15 UNITS UNK
     Route: 058
  9. VISTARIL [Concomitant]
     Indication: ANXIETY
     Route: 048
  10. OGEN [Concomitant]
     Indication: HORMONE THERAPY
     Dosage: 0.625 OR 0.75MG DAILY
     Route: 048
     Dates: start: 2003
  11. LEVOTHYROXINE [Concomitant]
     Indication: THYROID DISORDER
     Route: 048
     Dates: start: 1994
  12. DIAZEPAM [Concomitant]
     Indication: ANXIETY
     Route: 048
  13. DIAZEPAM [Concomitant]
     Indication: ANXIETY
     Route: 048
  14. DILTIAZEM [Concomitant]
     Indication: BLOOD PRESSURE ABNORMAL
     Route: 048
  15. AMBIEN [Concomitant]
     Indication: SLEEP DISORDER
     Route: 048
  16. FUROSEMIDE [Concomitant]
     Indication: FLUID RETENTION
     Route: 048
  17. FLEXARIL [Concomitant]
     Indication: MUSCLE SPASMS
     Route: 048
  18. HYDROCODONE [Concomitant]
     Indication: PAIN
     Dosage: 5 500MG UNK
     Route: 048
  19. OXYCODONE [Concomitant]
     Indication: PAIN
     Dosage: 5 325MG PRN
     Route: 048
  20. BENICAR [Concomitant]
     Indication: BLOOD PRESSURE ABNORMAL
     Dosage: 20 12.5MG DAILY
     Route: 048

REACTIONS (15)
  - Mycotic allergy [Unknown]
  - Pneumonia [Unknown]
  - Anxiety disorder [Not Recovered/Not Resolved]
  - Bronchitis [Unknown]
  - Diabetes mellitus [Not Recovered/Not Resolved]
  - Depression [Unknown]
  - Oedema peripheral [Not Recovered/Not Resolved]
  - Respiratory disorder [Unknown]
  - Herpes zoster [Unknown]
  - Muscle spasms [Not Recovered/Not Resolved]
  - Tremor [Not Recovered/Not Resolved]
  - Hypertension [Not Recovered/Not Resolved]
  - Candida infection [Not Recovered/Not Resolved]
  - Off label use [Unknown]
  - Off label use [Not Recovered/Not Resolved]
